FAERS Safety Report 6693713-2 (Version None)
Quarter: 2010Q2

REPORT INFORMATION
  Report Type: 
  Country: None (occurrence: None)
  Receive Date: 20100421
  Receipt Date: 20100409
  Transmission Date: 20101027
  Serious: Yes (Disabling)
  Sender: FDA-Public Use
  Company Number: ALA_00432_2010

PATIENT
  Sex: Female
  Weight: 77.2 kg

DRUGS (7)
  1. PEG-3350 [Suspect]
     Indication: COLONOSCOPY
     Dosage: (1 GALLON ORAL)
     Route: 048
     Dates: start: 20100221, end: 20100222
  2. ATENOLOL [Concomitant]
  3. HYDROCHLOROTHIAZIDE [Concomitant]
  4. ASPIRIN [Concomitant]
  5. VITAMIN D3 [Concomitant]
  6. AMBIEN [Concomitant]
  7. VITAMIN B6 [Concomitant]

REACTIONS (3)
  - COLON ADENOMA [None]
  - DYSPHONIA [None]
  - LARYNGITIS VIRAL [None]
